FAERS Safety Report 8134702-0 (Version None)
Quarter: 2012Q1

REPORT INFORMATION
  Report Type: 
  Country: None (occurrence: None)
  Receive Date: 20120214
  Receipt Date: 20120211
  Transmission Date: 20120608
  Serious: Yes (Other)
  Sender: FDA-Public Use
  Company Number: US-PFIZER INC-2012037348

PATIENT
  Sex: Female
  Weight: 50.34 kg

DRUGS (2)
  1. CHANTIX [Suspect]
     Indication: SMOKING CESSATION THERAPY
     Dosage: 0.5 MG, DAILY
     Dates: start: 20120206, end: 20120201
  2. CHANTIX [Suspect]
     Dosage: UNK
     Dates: start: 20120201

REACTIONS (5)
  - PAIN [None]
  - MULTIPLE SCLEROSIS RELAPSE [None]
  - NEURALGIA [None]
  - FATIGUE [None]
  - ASTHENIA [None]
